FAERS Safety Report 9189900 (Version 1)
Quarter: 2013Q1

REPORT INFORMATION
  Report Type: Spontaneous
  Country: US (occurrence: None)
  Receive Date: 20130322
  Receipt Date: 20130322
  Transmission Date: 20140127
  Serious: Yes (Disabling)
  Sender: FDA-Public Use
  Company Number: None

PATIENT
  Age: 78 Year
  Sex: Female
  Weight: 79.38 kg

DRUGS (1)
  1. LEVAQUIN [Suspect]
     Indication: BRONCHIECTASIS
     Dosage: ONE PER DAY PRN PO
     Route: 048

REACTIONS (3)
  - Arthralgia [None]
  - Gait disturbance [None]
  - Tendon disorder [None]
